FAERS Safety Report 12952981 (Version 1)
Quarter: 2016Q4

REPORT INFORMATION
  Report Type: Spontaneous
  Country: DE (occurrence: DE)
  Receive Date: 20161117
  Receipt Date: 20161117
  Transmission Date: 20170207
  Serious: Yes (Other)
  Sender: FDA-Public Use
  Company Number: DE-TEVA-710376GER

PATIENT
  Age: 59 Year
  Sex: Female

DRUGS (7)
  1. PREDNISOLON [Suspect]
     Active Substance: PREDNISOLONE
     Indication: SUDDEN HEARING LOSS
     Dosage: 40 MILLIGRAM DAILY;
     Route: 048
     Dates: start: 20161026, end: 20161028
  2. PREDNISOLON [Suspect]
     Active Substance: PREDNISOLONE
     Dosage: 5 MILLIGRAM DAILY;
     Route: 048
     Dates: start: 20161103, end: 20161103
  3. L-THYROXIN [Concomitant]
     Active Substance: LEVOTHYROXINE SODIUM
  4. PREDNISOLON [Suspect]
     Active Substance: PREDNISOLONE
     Dosage: 25 MILLIGRAM DAILY;
     Route: 048
     Dates: start: 20161029, end: 20161030
  5. PREDNISOLON [Suspect]
     Active Substance: PREDNISOLONE
     Dosage: 15 MILLIGRAM DAILY;
     Route: 048
     Dates: start: 20161101, end: 20161101
  6. PREDNISOLON [Suspect]
     Active Substance: PREDNISOLONE
     Dosage: 10 MILLIGRAM DAILY;
     Route: 048
     Dates: start: 20161102, end: 20161102
  7. PREDNISOLON [Suspect]
     Active Substance: PREDNISOLONE
     Dosage: 20 MILLIGRAM DAILY;
     Route: 048
     Dates: start: 20161031, end: 20161031

REACTIONS (9)
  - Dizziness [Unknown]
  - Oedema [Unknown]
  - Respiratory distress [Unknown]
  - Hypoaesthesia [Unknown]
  - Proctalgia [Unknown]
  - Paraesthesia [Unknown]
  - Visual impairment [Unknown]
  - Syncope [Unknown]
  - Hypoaesthesia oral [Unknown]

NARRATIVE: CASE EVENT DATE: 20161027
